FAERS Safety Report 7353508-3 (Version None)
Quarter: 2011Q1

REPORT INFORMATION
  Report Type: 
  Country: None (occurrence: None)
  Receive Date: 20110307
  Receipt Date: 20100517
  Transmission Date: 20110831
  Serious: No
  Sender: FDA-Public Use
  Company Number: AEUSA201000173

PATIENT
  Age: 51 Year
  Sex: Male
  Weight: 79.3795 kg

DRUGS (18)
  1. PROLASTIN [Suspect]
     Indication: ALPHA-1 ANTI-TRYPSIN DEFICIENCY
     Dosage: ;QW;IV
     Route: 042
     Dates: start: 20090101, end: 20100101
  2. SKELAXIN [Concomitant]
  3. ZOLOFT /01011402/ [Concomitant]
  4. SYMBICORT [Concomitant]
  5. PLAVIX [Concomitant]
  6. ZOCOR [Concomitant]
  7. LISINOPRIL [Concomitant]
  8. LORTAB [Concomitant]
  9. VALIUM [Concomitant]
  10. COREG [Concomitant]
  11. TRAZODONE [Concomitant]
  12. LIDODERM [Concomitant]
  13. NITROGLYCERIN [Concomitant]
  14. PROLASTIN-C [Suspect]
     Indication: ALPHA-1 ANTI-TRYPSIN DEFICIENCY
     Dosage: ;IV
     Route: 042
     Dates: start: 20100101
  15. FENTANYL [Concomitant]
  16. BENADRYL [Concomitant]
  17. GABAPENTIN [Concomitant]
  18. PROVENTIL /00139501/ [Concomitant]

REACTIONS (2)
  - FATIGUE [None]
  - PRURITUS [None]
